FAERS Safety Report 5880204-1 (Version None)
Quarter: 2008Q3

REPORT INFORMATION
  Report Type: 
  Country: None (occurrence: None)
  Receive Date: 20080912
  Receipt Date: 20080903
  Transmission Date: 20090109
  Serious: Yes (Hospitalization, Other)
  Sender: FDA-Public Use
  Company Number: JP-PFIZER INC-2008074274

PATIENT

DRUGS (8)
  1. SOLANAX [Suspect]
     Route: 048
  2. RITALIN [Suspect]
     Route: 048
  3. ANTIPSYCHOTICS [Concomitant]
  4. AKINETON [Concomitant]
  5. SERENACE [Concomitant]
  6. LEXOTAN [Concomitant]
     Route: 048
  7. TOFRANIL [Concomitant]
     Route: 048
  8. TOLEDOMIN [Concomitant]
     Route: 048

REACTIONS (1)
  - DIABETES MELLITUS [None]
